FAERS Safety Report 10466257 (Version 1)
Quarter: 2014Q3

REPORT INFORMATION
  Report Type: Spontaneous
  Country: US (occurrence: None)
  Receive Date: 20140918
  Receipt Date: 20140918
  Transmission Date: 20150326
  Serious: Yes (Other)
  Sender: FDA-Public Use
  Company Number: 2010S1000557

PATIENT
  Age: 56 Year
  Sex: Female

DRUGS (9)
  1. LASIX [Concomitant]
     Active Substance: FUROSEMIDE
  2. TOPROL (METOPROLOL SUCCINATE) [Concomitant]
  3. PHOSPHO-SODA [Suspect]
     Active Substance: SODIUM PHOSPHATE, DIBASIC\SODIUM PHOSPHATE, MONOBASIC
     Indication: COLONOSCOPY
     Route: 048
     Dates: start: 20071009
  4. HYDROCODONE (HYDROCODONE) [Concomitant]
     Active Substance: HYDROCODONE
  5. PLAVIX (CLOPIDOGREL BISULFATE) [Concomitant]
  6. VICODIN (PARACETAMOL, HYDROCODONE BITARTRATE) [Concomitant]
  7. WELLBUTRIN [Concomitant]
     Active Substance: BUPROPION HYDROCHLORIDE
  8. NEXIUM [Concomitant]
     Active Substance: ESOMEPRAZOLE MAGNESIUM
  9. HYDROCHLOROTHIAZIDE (HYDROCHLOROTHIAZIDE) [Concomitant]
     Active Substance: HYDROCHLOROTHIAZIDE

REACTIONS (8)
  - Diarrhoea [None]
  - Headache [None]
  - Sinusitis [None]
  - Fatigue [None]
  - Renal failure [None]
  - Hair growth abnormal [None]
  - Ear pain [None]
  - Hypokalaemia [None]

NARRATIVE: CASE EVENT DATE: 20080502
